FAERS Safety Report 25532368 (Version 1)
Quarter: 2025Q3

REPORT INFORMATION
  Report Type: Spontaneous
  Country: US (occurrence: US)
  Receive Date: 20250709
  Receipt Date: 20250709
  Transmission Date: 20251021
  Serious: No
  Sender: MERCK SHARP & DOHME LLC
  Company Number: US-009507513-2300641

PATIENT
  Sex: Female

DRUGS (6)
  1. WINREVAIR [Suspect]
     Active Substance: SOTATERCEPT-CSRK
  2. WINREVAIR [Suspect]
     Active Substance: SOTATERCEPT-CSRK
  3. WINREVAIR [Suspect]
     Active Substance: SOTATERCEPT-CSRK
  4. WINREVAIR [Suspect]
     Active Substance: SOTATERCEPT-CSRK
  5. MACITENTAN [Concomitant]
     Active Substance: MACITENTAN
     Dates: start: 2023
  6. SELEXIPAG [Concomitant]
     Active Substance: SELEXIPAG

REACTIONS (3)
  - Rash erythematous [Unknown]
  - Purpura [Unknown]
  - Skin exfoliation [Unknown]
